FAERS Safety Report 6076271-5 (Version None)
Quarter: 2009Q1

REPORT INFORMATION
  Report Type: 
  Country: None (occurrence: None)
  Receive Date: 20090209
  Receipt Date: 20090126
  Transmission Date: 20090719
  Serious: Yes (Other)
  Sender: FDA-Public Use
  Company Number: 230003K08CHE

PATIENT
  Age: 61 Year
  Sex: Female
  Weight: 85 kg

DRUGS (5)
  1. REBIF [Suspect]
     Indication: DRUG USE FOR UNKNOWN INDICATION
     Dosage: 22 MCG, 3 IN 1 WEEKS, SUBCUTANEOUS
     Route: 058
  2. SIFROL (FRAMIPEXOLE DIHYDROCHLORIDE) [Concomitant]
  3. ASPIRIN [Concomitant]
  4. BETA BLOCKER (BETA BLOCKING AGENTS) [Concomitant]
  5. FUROSEMIDE (FUROSEMIDE /00032601/) [Concomitant]

REACTIONS (3)
  - CONDITION AGGRAVATED [None]
  - INSOMNIA [None]
  - RESTLESS LEGS SYNDROME [None]
